FAERS Safety Report 11400237 (Version 1)
Quarter: 2015Q3

REPORT INFORMATION
  Report Type: Spontaneous
  Country: US (occurrence: US)
  Receive Date: 20150820
  Receipt Date: 20150820
  Transmission Date: 20151125
  Serious: Yes (Other)
  Sender: FDA-Public Use
  Company Number: US-GLAXOSMITHKLINE-US2015GSK119580

PATIENT
  Age: 10 Year
  Sex: Female

DRUGS (6)
  1. MORPHINE [Concomitant]
     Active Substance: MORPHINE
     Dosage: 2 MG, SINGLE
     Route: 042
  2. GUANFACINE. [Concomitant]
     Active Substance: GUANFACINE
     Indication: ATTENTION DEFICIT/HYPERACTIVITY DISORDER
     Dosage: 1 MG, UNK
     Route: 048
  3. LORAZEPAM. [Concomitant]
     Active Substance: LORAZEPAM
     Dosage: 2 MG, SINGLE
     Route: 042
  4. KETAMINE [Suspect]
     Active Substance: KETAMINE
     Indication: SEDATION
     Dosage: 1 MG/KG, SINGLE
     Route: 042
  5. FENTANYL. [Concomitant]
     Active Substance: FENTANYL
     Dosage: 150 UG, SINGLE
     Route: 045
  6. ONDANSETRON [Suspect]
     Active Substance: ONDANSETRON
     Indication: PROPHYLAXIS
     Dosage: 4 MG, SINGLE

REACTIONS (4)
  - Ventricular tachycardia [Recovered/Resolved]
  - Agitation [Unknown]
  - Arrhythmia [Recovered/Resolved]
  - Crying [Unknown]
